FAERS Safety Report 5836566-4 (Version None)
Quarter: 2008Q3

REPORT INFORMATION
  Report Type: 
  Country: None (occurrence: None)
  Receive Date: 20080801
  Receipt Date: 20080128
  Transmission Date: 20090109
  Serious: No
  Sender: FDA-Public Use
  Company Number: 20520080134

PATIENT
  Age: 39 Year

DRUGS (7)
  1. SOMATULINE DEPOT [Suspect]
     Indication: ACROMEGALY
     Dosage: SUBCUT
     Route: 058
     Dates: start: 20080102
  2. METFORMIN HCL [Concomitant]
  3. GLYBURIDE [Concomitant]
  4. CORTISONE ACETATE [Concomitant]
  5. SYNTHROID [Concomitant]
  6. MULTI-VITAMIN [Concomitant]
  7. SANDOSTATIN [Concomitant]

REACTIONS (1)
  - INJECTION SITE PAIN [None]
